FAERS Safety Report 10724434 (Version 1)
Quarter: 2015Q1

REPORT INFORMATION
  Report Type: Spontaneous
  Country: US (occurrence: None)
  Receive Date: 20150116
  Receipt Date: 20150116
  Transmission Date: 20150721
  Serious: No
  Sender: FDA-Public Use
  Company Number: None

PATIENT
  Age: 62 Year
  Sex: Male
  Weight: 83.92 kg

DRUGS (3)
  1. BUTRANS [Suspect]
     Active Substance: BUPRENORPHINE
     Indication: BACK PAIN
     Dosage: 1 PATCH WEEKLY APPLIED AS MEDICATED PATCH TO SKIN
  2. BUTRANS [Suspect]
     Active Substance: BUPRENORPHINE
     Indication: MUSCULOSKELETAL PAIN
     Dosage: 1 PATCH WEEKLY APPLIED AS MEDICATED PATCH TO SKIN
  3. BUTRANS [Suspect]
     Active Substance: BUPRENORPHINE
     Indication: ARTHRALGIA
     Dosage: 1 PATCH WEEKLY APPLIED AS MEDICATED PATCH TO SKIN

REACTIONS (1)
  - Dermatitis contact [None]

NARRATIVE: CASE EVENT DATE: 20150113
